FAERS Safety Report 15575853 (Version 2)
Quarter: 2019Q4

REPORT INFORMATION
  Report Type: Spontaneous
  Country: FR (occurrence: FR)
  Receive Date: 20181101
  Receipt Date: 20191002
  Transmission Date: 20200122
  Serious: Yes (Other)
  Sender: FDA-Public Use
  Company Number: FR-SAKK-2018SA299993AA

PATIENT
  Age: 57 Year
  Sex: Male

DRUGS (1)
  1. CEREZYME [Suspect]
     Active Substance: IMIGLUCERASE
     Dosage: UNK UNK, UNK
     Route: 065

REACTIONS (2)
  - Acute coronary syndrome [Unknown]
  - Renal failure [Unknown]

NARRATIVE: CASE EVENT DATE: 20180828
